FAERS Safety Report 16392478 (Version 1)
Quarter: 2019Q2

REPORT INFORMATION
  Report Type: Spontaneous
  Country: US (occurrence: US)
  Receive Date: 20190605
  Receipt Date: 20190605
  Transmission Date: 20190711
  Serious: No
  Sender: FDA-Public Use
  Company Number: US-AUROBINDO-AUR-APU-2018-040338

PATIENT
  Age: 26 Year
  Sex: Female
  Weight: 51.7 kg

DRUGS (1)
  1. ONDANSETRON ORALLY DISINTEGRATING TABLETS USP 8 MG [Suspect]
     Active Substance: ONDANSETRON
     Indication: GASTRIC DISORDER
     Dosage: 2 TO 3 TIMES PER DAY
     Route: 048
     Dates: start: 20180726, end: 20180727

REACTIONS (3)
  - Product substitution issue [Unknown]
  - Malaise [Not Recovered/Not Resolved]
  - Vomiting [Not Recovered/Not Resolved]

NARRATIVE: CASE EVENT DATE: 20180726
